FAERS Safety Report 5176448-7 (Version None)
Quarter: 2006Q4

REPORT INFORMATION
  Report Type: 
  Country: None (occurrence: None)
  Receive Date: 20061215
  Receipt Date: 20060804
  Transmission Date: 20070319
  Serious: Yes (Hospitalization)
  Sender: FDA-Public Use
  Company Number: MY-BRISTOL-MYERS SQUIBB COMPANY-13467048

PATIENT
  Age: 77 Year
  Sex: Female
  Weight: 40 kg

DRUGS (13)
  1. IRBESARTAN [Suspect]
     Indication: HYPERTENSION
     Dates: start: 20040511
  2. BLINDED: PLACEBO [Suspect]
     Indication: HYPERTENSION
     Dates: start: 20040511
  3. WARFARIN SODIUM [Suspect]
     Indication: PROPHYLAXIS
     Dates: start: 20040511
  4. CEFOBID [Concomitant]
     Route: 042
  5. AZITHROMYCIN [Concomitant]
  6. HEPARIN [Concomitant]
  7. ACETAMINOPHEN [Concomitant]
  8. CIPROFLOXACIN [Concomitant]
     Route: 042
  9. BISOLVON [Concomitant]
     Route: 048
  10. LOVASTATIN [Concomitant]
  11. IMDUR [Concomitant]
  12. GLICLAZIDE [Concomitant]
  13. ACETYLSALICYLIC ACID SRT [Concomitant]

REACTIONS (4)
  - BRONCHIECTASIS [None]
  - PNEUMONIA [None]
  - RENAL IMPAIRMENT [None]
  - UPPER RESPIRATORY TRACT INFECTION [None]
